FAERS Safety Report 5872109-7 (Version None)
Quarter: 2008Q3

REPORT INFORMATION
  Report Type: 
  Country: None (occurrence: None)
  Receive Date: 20080905
  Receipt Date: 20080829
  Transmission Date: 20090109
  Serious: Yes (Other)
  Sender: FDA-Public Use
  Company Number: B0534854A

PATIENT
  Age: 38 Year
  Sex: Male

DRUGS (4)
  1. CLENIL [Suspect]
     Indication: ASTHMA
     Dosage: 400MCG PER DAY
     Route: 055
     Dates: start: 20080709, end: 20080805
  2. SALBUTAMOL [Concomitant]
     Indication: ASTHMA
     Route: 055
     Dates: start: 20080704, end: 20080805
  3. AMOXICILLIN [Concomitant]
     Dosage: 2000MG PER DAY
     Route: 048
     Dates: start: 20080704, end: 20080711
  4. PREDNISOLONE [Concomitant]
     Indication: ASTHMA
     Dosage: 30MG PER DAY
     Route: 048
     Dates: start: 20080704, end: 20080709

REACTIONS (1)
  - SYNCOPE [None]
